FAERS Safety Report 6782545-2 (Version None)
Quarter: 2010Q2

REPORT INFORMATION
  Report Type: 
  Country: None (occurrence: None)
  Receive Date: 20100621
  Receipt Date: 20100617
  Transmission Date: 20101027
  Serious: Yes (Other)
  Sender: FDA-Public Use
  Company Number: US-RB-009912-10

PATIENT
  Age: 51 Year
  Sex: Female

DRUGS (5)
  1. SUBOXONE [Suspect]
     Route: 060
     Dates: start: 20100513
  2. XANAX [Suspect]
     Indication: HEAD INJURY
     Dosage: DOSING SCHEDULE UNKNOWN.
     Route: 048
     Dates: end: 20100501
  3. KLONOPIN [Suspect]
     Indication: HEAD INJURY
     Dosage: DOSING INFORMATION UNKNOWN.
     Route: 048
     Dates: end: 20100501
  4. SEROQUEL [Suspect]
     Indication: DEPRESSION
     Dosage: DOSING INFORMATION UNKNOWN.
     Route: 048
     Dates: start: 20100501, end: 20100501
  5. AMBIEN [Concomitant]
     Indication: INSOMNIA
     Dosage: DOSING INFORMATION UNKNOWN.
     Route: 048

REACTIONS (6)
  - CONVULSION [None]
  - FUNGAL INFECTION [None]
  - HERPES VIRUS INFECTION [None]
  - HYPERHIDROSIS [None]
  - INSOMNIA [None]
  - NAUSEA [None]
